FAERS Safety Report 16855447 (Version 1)
Quarter: 2019Q3

REPORT INFORMATION
  Report Type: Spontaneous
  Country: IN (occurrence: IN)
  Receive Date: 20190926
  Receipt Date: 20190926
  Transmission Date: 20191005
  Serious: Yes (Hospitalization, Other)
  Sender: FDA-Public Use
  Company Number: IN-MYLANLABS-2019M1089452

PATIENT
  Age: 6 Year
  Sex: Female

DRUGS (4)
  1. METHYLPREDNISOLONE. [Suspect]
     Active Substance: METHYLPREDNISOLONE
     Indication: DERMATOMYOSITIS
     Dosage: SHE RECEIVED METHYLPREDNISOLONE PULSE TWICE
     Route: 050
  2. METHOTREXATE. [Suspect]
     Active Substance: METHOTREXATE
     Indication: DERMATOMYOSITIS
     Dosage: UNK
     Route: 058
  3. PREDNISOLONE. [Suspect]
     Active Substance: PREDNISOLONE
     Indication: DERMATOMYOSITIS
     Dosage: HIGH-DOSE
     Route: 048
  4. IMMUNE GLOBULIN NOS [Suspect]
     Active Substance: IMMUNE GLOBULIN NOS
     Indication: DERMATOMYOSITIS
     Dosage: INTRAVENOUS IG AT 2 G/KG WAS GIVEN
     Route: 042

REACTIONS (5)
  - Klebsiella infection [Recovered/Resolved]
  - Cytomegalovirus colitis [Recovered/Resolved]
  - Lymphopenia [Recovered/Resolved]
  - Cytomegalovirus infection [Recovered/Resolved]
  - Large intestine perforation [Recovered/Resolved]
